FAERS Safety Report 13592781 (Version 1)
Quarter: 2017Q2

REPORT INFORMATION
  Report Type: Spontaneous
  Country: US (occurrence: US)
  Receive Date: 20170530
  Receipt Date: 20170530
  Transmission Date: 20170830
  Serious: No
  Sender: FDA-Public Use
  Company Number: US-TEVA-725062ACC

PATIENT
  Sex: Male

DRUGS (1)
  1. PENICILLIN V POTASSIUM TABLETS [Suspect]
     Active Substance: PENICILLIN V POTASSIUM
     Indication: DERMATITIS
     Route: 065

REACTIONS (2)
  - Headache [Unknown]
  - Product use in unapproved indication [Unknown]
